FAERS Safety Report 6406373-2 (Version None)
Quarter: 2009Q4

REPORT INFORMATION
  Report Type: 
  Country: None (occurrence: None)
  Receive Date: 20091019
  Receipt Date: 20091006
  Transmission Date: 20100525
  Serious: Yes (Other)
  Sender: FDA-Public Use
  Company Number: CHPA2009US20030

PATIENT
  Sex: Female

DRUGS (4)
  1. EXCEDRIN MIGRAINE (NCH) [Suspect]
     Indication: MIGRAINE
     Dosage: 3 TABLETS, ONCE/SINGLE
     Route: 048
  2. EXCEDRIN MIGRAINE (NCH) [Suspect]
     Dosage: 2 TABLETS, PRN
     Route: 048
  3. LAMOTRIGINE [Concomitant]
     Indication: EPILEPSY
     Route: 048
  4. MOTRIN [Concomitant]
     Indication: HEADACHE

REACTIONS (2)
  - EPILEPSY [None]
  - OVERDOSE [None]
